FAERS Safety Report 6930663-8 (Version None)
Quarter: 2010Q3

REPORT INFORMATION
  Report Type: 
  Country: None (occurrence: None)
  Receive Date: 20100818
  Receipt Date: 20100714
  Transmission Date: 20110219
  Serious: No
  Sender: FDA-Public Use
  Company Number: A0870435A

PATIENT
  Age: 92 Year

DRUGS (3)
  1. COREG CR [Suspect]
     Route: 048
  2. MULTIPLE MEDICATIONS [Concomitant]
  3. INSULIN [Concomitant]

REACTIONS (1)
  - BLOOD PRESSURE DECREASED [None]
